FAERS Safety Report 4355272-9 (Version None)
Quarter: 2004Q2

REPORT INFORMATION
  Report Type: 
  Country: None (occurrence: None)
  Receive Date: 20040505
  Receipt Date: 20040304
  Transmission Date: 20050107
  Serious: Yes (Hospitalization)
  Sender: FDA-Public Use
  Company Number: 2004AP02440

PATIENT
  Age: 59 Year
  Sex: Female

DRUGS (9)
  1. IRESSA [Suspect]
     Indication: LUNG ADENOCARCINOMA
     Dosage: 250 MG DAILY PO
     Route: 048
     Dates: start: 20031119, end: 20031204
  2. IRESSA [Suspect]
     Indication: NON-SMALL CELL LUNG CANCER
     Dosage: 250 MG DAILY PO
     Route: 048
     Dates: start: 20031119, end: 20031204
  3. ULCERLMIN [Concomitant]
  4. MUCODYNE [Concomitant]
  5. ROHYPNOL [Concomitant]
  6. LORCAM [Concomitant]
  7. MUCOSTA [Concomitant]
  8. CISPLATIN [Concomitant]
  9. GEMCITABINE [Concomitant]

REACTIONS (8)
  - ALANINE AMINOTRANSFERASE INCREASED [None]
  - ANXIETY [None]
  - ASPARTATE AMINOTRANSFERASE INCREASED [None]
  - CHILLS [None]
  - DECREASED APPETITE [None]
  - HEPATIC FUNCTION ABNORMAL [None]
  - PERFORMANCE STATUS DECREASED [None]
  - PYREXIA [None]
